FAERS Safety Report 8181196-5 (Version None)
Quarter: 2012Q1

REPORT INFORMATION
  Report Type: 
  Country: None (occurrence: None)
  Receive Date: 20120302
  Receipt Date: 20111124
  Transmission Date: 20120608
  Serious: Yes (Other)
  Sender: FDA-Public Use
  Company Number: AU-GLAXOSMITHKLINE-B0766014A

PATIENT
  Sex: Female

DRUGS (2)
  1. XELODA [Suspect]
     Indication: PRODUCT USED FOR UNKNOWN INDICATION
     Route: 065
     Dates: start: 20111014
  2. TYKERB [Suspect]
     Indication: BREAST CANCER METASTATIC
     Route: 048
     Dates: start: 20111014

REACTIONS (4)
  - ORAL PAIN [None]
  - DIARRHOEA [None]
  - PALMAR-PLANTAR ERYTHRODYSAESTHESIA SYNDROME [None]
  - NAIL INFECTION [None]
